FAERS Safety Report 9007797 (Version 1)
Quarter: 2013Q1

REPORT INFORMATION
  Report Type: Spontaneous
  Country: US (occurrence: US)
  Receive Date: 20130111
  Receipt Date: 20130111
  Transmission Date: 20140127
  Serious: Yes (Other)
  Sender: FDA-Public Use
  Company Number: US-009507513-0902USA00759

PATIENT
  Sex: Male
  Weight: 90.72 kg

DRUGS (2)
  1. SINGULAIR [Suspect]
     Indication: HYPERSENSITIVITY
     Dosage: 10 MG, QD
     Route: 048
     Dates: start: 20060208, end: 20080807
  2. SINGULAIR [Suspect]
     Indication: ASTHMA

REACTIONS (5)
  - Asthma [Unknown]
  - Cough [Unknown]
  - Dyspnoea [Unknown]
  - Drug effect decreased [Unknown]
  - Product quality issue [Unknown]
